FAERS Safety Report 10072359 (Version 1)
Quarter: 2014Q2

REPORT INFORMATION
  Report Type: Spontaneous
  Country: FR (occurrence: FR)
  Receive Date: 20140411
  Receipt Date: 20140411
  Transmission Date: 20141212
  Serious: Yes (Hospitalization, Other)
  Sender: FDA-Public Use
  Company Number: FR-BRISTOL-MYERS SQUIBB COMPANY-20591178

PATIENT
  Age: 75 Year
  Sex: Female
  Weight: 40 kg

DRUGS (2)
  1. YERVOY [Suspect]
     Indication: METASTATIC MALIGNANT MELANOMA
     Route: 042
  2. FLUCONAZOLE [Suspect]
     Indication: ORAL CANDIDIASIS

REACTIONS (2)
  - Diarrhoea [Not Recovered/Not Resolved]
  - Oral candidiasis [Recovered/Resolved]
